FAERS Safety Report 5291256-4 (Version None)
Quarter: 2007Q2

REPORT INFORMATION
  Report Type: 
  Country: None (occurrence: None)
  Receive Date: 20070409
  Receipt Date: 20070328
  Transmission Date: 20071010
  Serious: Yes (Hospitalization, Other)
  Sender: FDA-Public Use
  Company Number: CA-PFIZER INC-2006141111

PATIENT
  Age: 36 Year
  Sex: Female

DRUGS (11)
  1. SERTRALINE [Suspect]
     Dosage: DAILY DOSE:125MG
  2. MEDROXYPROGESTERONE [Suspect]
     Route: 030
  3. EPHEDRINE SUL CAP [Suspect]
  4. ACETYLSALICYLIC ACID SRT [Suspect]
  5. CAFFEINE [Concomitant]
     Dosage: DAILY DOSE:600MG
  6. VITAMIN CAP [Concomitant]
  7. ASCORBIC ACID [Concomitant]
     Dosage: DAILY DOSE:1000MG
  8. VITAMIN E [Concomitant]
     Dosage: DAILY DOSE:1000I.U.
  9. CALCIUM [Concomitant]
     Dosage: DAILY DOSE:1200MG
  10. MAGNESIUM [Concomitant]
     Dosage: DAILY DOSE:600MG
  11. DIPHENHYDRAMINE HCL [Concomitant]
     Dosage: DAILY DOSE:100MG

REACTIONS (2)
  - HEPATOTOXICITY [None]
  - RHABDOMYOLYSIS [None]
